FAERS Safety Report 5835383-9 (Version None)
Quarter: 2008Q3

REPORT INFORMATION
  Report Type: 
  Country: None (occurrence: None)
  Receive Date: 20080806
  Receipt Date: 20080804
  Transmission Date: 20090109
  Serious: Yes (Death, Hospitalization)
  Sender: FDA-Public Use
  Company Number: NZ-MERCK-0801NZL00002

PATIENT
  Age: 53 Year
  Sex: Male

DRUGS (6)
  1. ZOCOR [Suspect]
     Indication: HYPERCHOLESTEROLAEMIA
     Route: 048
     Dates: start: 19970101, end: 20030101
  2. ZOCOR [Suspect]
     Route: 048
     Dates: start: 20030101, end: 20070101
  3. ASPIRIN [Concomitant]
     Route: 048
  4. SALAZOPYRIN [Concomitant]
     Indication: COLITIS ULCERATIVE
     Route: 048
     Dates: end: 20071001
  5. TYPHOID VACCINE (UNSPECIFIED) [Concomitant]
     Indication: IMMUNISATION
     Route: 065
     Dates: start: 20070701
  6. HAVRIX [Concomitant]
     Indication: IMMUNISATION
     Route: 065
     Dates: start: 20070701

REACTIONS (1)
  - RHABDOMYOLYSIS [None]
